FAERS Safety Report 10461299 (Version 1)
Quarter: 2014Q3

REPORT INFORMATION
  Report Type: Spontaneous
  Country: US (occurrence: US)
  Receive Date: 20140918
  Receipt Date: 20140918
  Transmission Date: 20150326
  Serious: Yes (Other)
  Sender: FDA-Public Use
  Company Number: US-ASTRAZENECA-2014SE68867

PATIENT
  Age: 711 Month
  Sex: Female
  Weight: 89.8 kg

DRUGS (5)
  1. ATACAND HCT [Suspect]
     Active Substance: CANDESARTAN CILEXETIL\HYDROCHLOROTHIAZIDE
     Indication: HYPERTENSION
     Dosage: 16/12.5 MG DAILY
     Route: 048
     Dates: start: 2004, end: 2008
  2. METOPROLOL SUCCINATE(WATSON)(NON-AZ PRODUCT) [Suspect]
     Active Substance: METOPROLOL SUCCINATE
     Indication: HEART RATE INCREASED
     Route: 048
     Dates: start: 2006, end: 20140824
  3. ATACAND HCT [Suspect]
     Active Substance: CANDESARTAN CILEXETIL\HYDROCHLOROTHIAZIDE
     Indication: HYPERTENSION
     Dosage: 32/25 MG DAILY
     Route: 048
     Dates: start: 2008, end: 201212
  4. ATACAND HCT [Suspect]
     Active Substance: CANDESARTAN CILEXETIL\HYDROCHLOROTHIAZIDE
     Indication: HYPERTENSION
     Dosage: CANDESARTAN CILEXETIL HYDROCHLOROTHIAZIDE MYLAN 32 25 MG DAILY
     Route: 048
     Dates: start: 201212
  5. METOPROLOL SUCCINATE(WATSON)(NON-AZ PRODUCT) [Suspect]
     Active Substance: METOPROLOL SUCCINATE
     Indication: HEART RATE INCREASED
     Route: 048
     Dates: start: 20140824

REACTIONS (3)
  - Breast cancer [Unknown]
  - Blood pressure fluctuation [Unknown]
  - Breast cancer female [None]

NARRATIVE: CASE EVENT DATE: 200604
